FAERS Safety Report 14060778 (Version 1)
Quarter: 2017Q4

REPORT INFORMATION
  Report Type: Spontaneous
  Country: DE (occurrence: DE)
  Receive Date: 20171009
  Receipt Date: 20171009
  Transmission Date: 20180321
  Serious: Yes (Other)
  Sender: FDA-Public Use
  Company Number: DE-DRREDDYS-GER/GER/17/0093953

PATIENT
  Age: 42 Year
  Sex: Female
  Weight: 67 kg

DRUGS (8)
  1. VENLAFAXINE [Suspect]
     Active Substance: VENLAFAXINE HYDROCHLORIDE
     Route: 048
  2. VOMEX A [Concomitant]
     Active Substance: DIMENHYDRINATE
     Indication: NAUSEA
     Dates: start: 20160928, end: 20160929
  3. FOLIO FORTE [Concomitant]
     Active Substance: FOLIC ACID\VITAMINS
     Indication: PROPHYLAXIS OF NEURAL TUBE DEFECT
     Route: 048
  4. IBUPROFEN. [Concomitant]
     Active Substance: IBUPROFEN
     Indication: HEADACHE
     Route: 048
     Dates: start: 20160928, end: 20160929
  5. AMPICILLIN [Concomitant]
     Active Substance: AMPICILLIN
     Indication: STREPTOCOCCUS TEST POSITIVE
     Route: 042
  6. HUMINSULIN BASAL [Concomitant]
     Active Substance: INSULIN NOS
     Indication: GESTATIONAL DIABETES
     Route: 058
  7. VENLAFAXINE [Suspect]
     Active Substance: VENLAFAXINE HYDROCHLORIDE
     Indication: BORDERLINE PERSONALITY DISORDER
     Dosage: INITIAL 112.5MG FOR 7 DAYS, DOSAGE INCREASED TO 150 MG/DAY FROM GW 28
     Route: 048
     Dates: start: 20160608, end: 20170312
  8. HUMINSULIN NORMAL [Concomitant]
     Indication: GESTATIONAL DIABETES
     Route: 058

REACTIONS (5)
  - Haemorrhage in pregnancy [Unknown]
  - Obstructed labour [Unknown]
  - Streptococcus test positive [Unknown]
  - Gestational diabetes [Unknown]
  - Exposure during pregnancy [Unknown]
